FAERS Safety Report 23640585 (Version 10)
Quarter: 2025Q2

REPORT INFORMATION
  Report Type: Spontaneous
  Country: US (occurrence: US)
  Receive Date: 20240318
  Receipt Date: 20250624
  Transmission Date: 20250717
  Serious: Yes (Hospitalization, Other)
  Sender: CSL BEHRING
  Company Number: US-BEH-2024169673

PATIENT
  Age: 74 Year
  Sex: Female

DRUGS (38)
  1. HIZENTRA [Suspect]
     Active Substance: HUMAN IMMUNOGLOBULIN G
     Indication: Immunodeficiency
     Dosage: 13 GRAM, QW (EVERY 7 DAYS)
     Route: 058
  2. HIZENTRA [Suspect]
     Active Substance: HUMAN IMMUNOGLOBULIN G
     Dosage: 13 GRAM, QW (EVERY 7 DAYS)
     Route: 058
  3. HIZENTRA [Suspect]
     Active Substance: HUMAN IMMUNOGLOBULIN G
     Dosage: 13 GRAM, QW (EVERY 7 DAYS)
     Route: 058
  4. HIZENTRA [Suspect]
     Active Substance: HUMAN IMMUNOGLOBULIN G
     Dosage: 13 G, QW (EVERY 7 DAYS)
     Route: 058
  5. HIZENTRA [Suspect]
     Active Substance: HUMAN IMMUNOGLOBULIN G
     Dosage: 13 GRAM, QW (EVERY 7 DAYS)
     Route: 058
  6. HIZENTRA [Suspect]
     Active Substance: HUMAN IMMUNOGLOBULIN G
     Dosage: 13 GRAM, QW (EVERY 7 DAYS)
     Route: 058
     Dates: start: 202209
  7. GABAPENTIN [Concomitant]
     Active Substance: GABAPENTIN
  8. MIRTAZAPINE [Concomitant]
     Active Substance: MIRTAZAPINE
  9. VALSARTAN AND HYDROCHLOROTHIAZIDE [Concomitant]
     Active Substance: HYDROCHLOROTHIAZIDE\VALSARTAN
  10. NEOMYCIN SULFATE\POLYMYXIN B SULFATE [Concomitant]
     Active Substance: NEOMYCIN SULFATE\POLYMYXIN B SULFATE
  11. BIDIL [Concomitant]
     Active Substance: HYDRALAZINE HYDROCHLORIDE\ISOSORBIDE DINITRATE
  12. BIDIL [Concomitant]
     Active Substance: HYDRALAZINE HYDROCHLORIDE\ISOSORBIDE DINITRATE
  13. PLAVIX [Concomitant]
     Active Substance: CLOPIDOGREL BISULFATE
  14. OMEPRAZOLE [Concomitant]
     Active Substance: OMEPRAZOLE
  15. ALLOPURINOL [Concomitant]
     Active Substance: ALLOPURINOL
  16. ATORVASTATIN [Concomitant]
     Active Substance: ATORVASTATIN
  17. AZELASTINE [Concomitant]
     Active Substance: AZELASTINE
  18. CHOLECALCIFEROL [Concomitant]
     Active Substance: CHOLECALCIFEROL
  19. COLCHICINE [Concomitant]
     Active Substance: COLCHICINE
  20. CYPROHEPTADINE [Concomitant]
     Active Substance: CYPROHEPTADINE
  21. DEXILANT [Concomitant]
     Active Substance: DEXLANSOPRAZOLE
  22. FAMOTIDINE [Concomitant]
     Active Substance: FAMOTIDINE
  23. FLUTICASONE [Concomitant]
     Active Substance: FLUTICASONE
  24. FOLIC ACID [Concomitant]
     Active Substance: FOLIC ACID
  25. FUROSEMIDE [Concomitant]
     Active Substance: FUROSEMIDE
  26. GUAIFENESIN [Concomitant]
     Active Substance: GUAIFENESIN
  27. MAGNESIUM OXIDE [Concomitant]
     Active Substance: MAGNESIUM OXIDE
  28. MECLIZINE HYDROCHLORIDE [Concomitant]
     Active Substance: MECLIZINE HYDROCHLORIDE
  29. MONTELUKAST [Concomitant]
     Active Substance: MONTELUKAST
  30. NOVOLOG [Concomitant]
     Active Substance: INSULIN ASPART
  31. PREDNISONE [Concomitant]
     Active Substance: PREDNISONE
  32. PROVENTIL HFA [Concomitant]
     Active Substance: ALBUTEROL SULFATE
  33. STIOLTO RESPIMAT [Concomitant]
     Active Substance: OLODATEROL HYDROCHLORIDE\TIOTROPIUM BROMIDE MONOHYDRATE
  34. SYSTANE COMPLETE [Concomitant]
     Active Substance: PROPYLENE GLYCOL
  35. XARELTO [Concomitant]
     Active Substance: RIVAROXABAN
  36. TRELEGY ELLIPTA [Concomitant]
     Active Substance: FLUTICASONE FUROATE\UMECLIDINIUM BROMIDE\VILANTEROL TRIFENATATE
  37. STIOLTO RESPIMAT [Concomitant]
     Active Substance: OLODATEROL HYDROCHLORIDE\TIOTROPIUM BROMIDE MONOHYDRATE
  38. MIRTAZAPINE [Concomitant]
     Active Substance: MIRTAZAPINE

REACTIONS (27)
  - Pneumonia [Not Recovered/Not Resolved]
  - Fatigue [Recovered/Resolved]
  - Pneumonia [Recovered/Resolved]
  - Fall [Unknown]
  - Loss of consciousness [Unknown]
  - Loss of consciousness [Unknown]
  - Hypotension [Unknown]
  - Pneumonia [Unknown]
  - Pyrexia [Unknown]
  - Urinary tract infection [Unknown]
  - Pneumonia [Unknown]
  - Loss of consciousness [Unknown]
  - Hypotension [Unknown]
  - Lethargy [Not Recovered/Not Resolved]
  - Blood pressure decreased [Not Recovered/Not Resolved]
  - Heart rate abnormal [Not Recovered/Not Resolved]
  - Productive cough [Not Recovered/Not Resolved]
  - Oxygen saturation decreased [Not Recovered/Not Resolved]
  - Body temperature increased [Not Recovered/Not Resolved]
  - Asthenia [Unknown]
  - Balance disorder [Unknown]
  - Fatigue [Unknown]
  - Lethargy [Unknown]
  - Lethargy [Unknown]
  - Vomiting [Unknown]
  - Product dose omission issue [Unknown]
  - Abdominal distension [Unknown]

NARRATIVE: CASE EVENT DATE: 20240301
